FAERS Safety Report 17686149 (Version 1)
Quarter: 2020Q2

REPORT INFORMATION
  Report Type: Spontaneous
  Country: DE (occurrence: DE)
  Receive Date: 20200420
  Receipt Date: 20200420
  Transmission Date: 20200714
  Serious: Yes (Other)
  Sender: FDA-Public Use
  Company Number: DE-ABBVIE-20K-062-3367458-00

PATIENT
  Age: 35 Year
  Sex: Male

DRUGS (1)
  1. TESTOSTERONE. [Suspect]
     Active Substance: TESTOSTERONE
     Indication: TRANSGENDER HORMONAL THERAPY
     Dosage: FOR THE PAST 6 YEARS, THE PATIENT WAS RECEIVING HIGH-DOSE TESTOSTERONE THERAPY
     Route: 065

REACTIONS (3)
  - Acute myocardial infarction [Unknown]
  - Coronary artery embolism [Unknown]
  - Off label use [Unknown]
